FAERS Safety Report 4392651-8 (Version None)
Quarter: 2004Q3

REPORT INFORMATION
  Report Type: 
  Country: None (occurrence: None)
  Receive Date: 20040701
  Receipt Date: 20040621
  Transmission Date: 20050211
  Serious: Yes (Death)
  Sender: FDA-Public Use
  Company Number: 2004EU001250

PATIENT
  Age: 29 Year
  Sex: Male

DRUGS (6)
  1. FK506 (TACROLIMUS) [Suspect]
     Indication: RENAL AND PANCREAS TRANSPLANT
     Dates: start: 20011201
  2. MYCOPHENOLATE MOFETIL (MYCOPHENOLATE MOFETIL) [Concomitant]
  3. METHYLPREDNISOLONE [Concomitant]
  4. TRIMETOPRIM -SULFA (SULFAMETHOXAZOLE, TRIMETHOPRIM) [Concomitant]
  5. GANCICLOVIR SODIUM [Concomitant]
  6. BASILIXIMAB (BASILIXIMAB) [Concomitant]

REACTIONS (8)
  - CONFUSIONAL STATE [None]
  - COUGH [None]
  - ENCEPHALITIS [None]
  - HEPATIC NECROSIS [None]
  - HEPATITIS [None]
  - HUMAN HERPESVIRUS 6 INFECTION [None]
  - PANCYTOPENIA [None]
  - RASH [None]
